FAERS Safety Report 23938485 (Version 1)
Quarter: 2024Q2

REPORT INFORMATION
  Report Type: Spontaneous
  Country: KR (occurrence: KR)
  Receive Date: 20240604
  Receipt Date: 20240604
  Transmission Date: 20240715
  Serious: Yes (Hospitalization)
  Sender: FDA-Public Use
  Company Number: KR-IMP-2024000332

PATIENT
  Age: 73 Year
  Sex: Female

DRUGS (2)
  1. MOXIFLOXACIN [Suspect]
     Active Substance: MOXIFLOXACIN
     Indication: Keratitis
     Route: 065
  2. FLUCONAZOLE [Suspect]
     Active Substance: FLUCONAZOLE
     Indication: Prophylaxis
     Route: 065

REACTIONS (4)
  - Corneal oedema [Unknown]
  - Condition aggravated [Unknown]
  - Visual acuity reduced [Recovered/Resolved]
  - Product use in unapproved indication [Unknown]
